FAERS Safety Report 6846624-3 (Version None)
Quarter: 2010Q3

REPORT INFORMATION
  Report Type: 
  Country: None (occurrence: None)
  Receive Date: 20100715
  Receipt Date: 20070920
  Transmission Date: 20110219
  Serious: No
  Sender: FDA-Public Use
  Company Number: US-PFIZER INC-2007078887

PATIENT
  Sex: Female
  Weight: 67.3 kg

DRUGS (6)
  1. CHANTIX [Suspect]
     Indication: SMOKING CESSATION THERAPY
     Route: 048
     Dates: start: 20070901
  2. HYGROTON [Concomitant]
  3. POTASSIUM CHLORIDE [Concomitant]
  4. FOLIC ACID [Concomitant]
  5. TENORMIN [Concomitant]
  6. XANAX [Concomitant]
     Indication: PALPITATIONS

REACTIONS (2)
  - DIZZINESS [None]
  - HYPOAESTHESIA [None]
